FAERS Safety Report 4333952-9 (Version None)
Quarter: 2004Q2

REPORT INFORMATION
  Report Type: 
  Country: None (occurrence: None)
  Receive Date: 20040402
  Receipt Date: 20040325
  Transmission Date: 20050107
  Serious: No
  Sender: FDA-Public Use
  Company Number: 04P-167-0254041-00

PATIENT
  Sex: Female

DRUGS (2)
  1. EPILIM TABLETS (SODIUM VALPROATE) (SODIUM VALPROATE) (SODIUM VALPROATE [Suspect]
  2. ANTIEPILEPTICS [Concomitant]

REACTIONS (3)
  - ANTICONVULSANT DRUG LEVEL DECREASED [None]
  - CONVULSION [None]
  - DRUG INEFFECTIVE [None]
